FAERS Safety Report 26115679 (Version 1)
Quarter: 2025Q4

REPORT INFORMATION
  Report Type: Spontaneous
  Country: GB (occurrence: GB)
  Receive Date: 20251203
  Receipt Date: 20251203
  Transmission Date: 20260118
  Serious: Yes (Other)
  Sender: HIKMA
  Company Number: GB-MLMSERVICE-20251113-PI710810-00165-1

PATIENT
  Age: 68 Year
  Sex: Male

DRUGS (5)
  1. GEMCITABINE [Suspect]
     Active Substance: GEMCITABINE
     Indication: Cutaneous T-cell lymphoma
     Dosage: 2 CYCLICAL
     Route: 065
  2. ACETAZOLAMIDE [Concomitant]
     Active Substance: ACETAZOLAMIDE
     Indication: Intraocular pressure increased
     Dosage: 250 MILLIGRAM, Q6H
     Route: 048
  3. BRIMONIDINE [Concomitant]
     Active Substance: BRIMONIDINE TARTRATE
     Indication: Intraocular pressure increased
     Dosage: UNK, Q12H
     Route: 065
  4. IOPIDINE [Concomitant]
     Active Substance: APRACLONIDINE HYDROCHLORIDE
     Indication: Intraocular pressure increased
     Dosage: UNK, Q8H
     Route: 065
  5. TIMOLOL, BIMATOPROST [Concomitant]
     Indication: Intraocular pressure increased
     Dosage: UNK, QD
     Route: 065

REACTIONS (8)
  - Bacterial endophthalmitis [Recovering/Resolving]
  - Endophthalmitis [Recovering/Resolving]
  - Neutropenic sepsis [Recovering/Resolving]
  - Bacillus infection [Recovering/Resolving]
  - Corynebacterium infection [Recovering/Resolving]
  - Enterobacter infection [Recovering/Resolving]
  - Lymphopenia [Recovering/Resolving]
  - Condition aggravated [Recovering/Resolving]
